FAERS Safety Report 5698264-X (Version None)
Quarter: 2008Q2

REPORT INFORMATION
  Report Type: 
  Country: None (occurrence: None)
  Receive Date: 20080408
  Receipt Date: 20080327
  Transmission Date: 20081010
  Serious: Yes (Other)
  Sender: FDA-Public Use
  Company Number: US-PFIZER INC-2008027783

PATIENT
  Sex: Female
  Weight: 40.8 kg

DRUGS (5)
  1. LYRICA [Interacting]
     Indication: DYSTONIA
  2. LYRICA [Interacting]
     Indication: PARKINSON'S DISEASE
  3. KLONOPIN [Interacting]
     Indication: ANXIETY
  4. SINEMET [Suspect]
  5. MIRAPEX [Concomitant]

REACTIONS (11)
  - ABDOMINAL DISTENSION [None]
  - AMNESIA [None]
  - ANXIETY [None]
  - CARDIAC DISORDER [None]
  - CONFUSIONAL STATE [None]
  - DRUG EFFECT DECREASED [None]
  - DRUG INTERACTION [None]
  - HYPOAESTHESIA ORAL [None]
  - INTENTIONAL DRUG MISUSE [None]
  - PANIC REACTION [None]
  - TREMOR [None]
